FAERS Safety Report 12223824 (Version 1)
Quarter: 2016Q1

REPORT INFORMATION
  Report Type: Report from Study
  Country: US (occurrence: US)
  Receive Date: 20160330
  Receipt Date: 20160330
  Transmission Date: 20160526
  Serious: Yes (Hospitalization, Other)
  Sender: FDA-Public Use
  Company Number: US-ABBVIE-16P-163-1579100-00

PATIENT
  Age: 30 Year
  Sex: Female
  Weight: 55.84 kg

DRUGS (2)
  1. LUPRON DEPOT [Suspect]
     Active Substance: LEUPROLIDE ACETATE
     Indication: ENDOMETRIOSIS
     Route: 050
     Dates: start: 20150827, end: 20151225
  2. NORETHINDRONE. [Concomitant]
     Active Substance: NORETHINDRONE
     Indication: PRODUCT USED FOR UNKNOWN INDICATION
     Route: 065

REACTIONS (8)
  - Pelvic pain [Unknown]
  - Hot flush [Recovered/Resolved]
  - Insomnia [Recovered/Resolved]
  - Procedural pain [Unknown]
  - Pelvic pain [Recovered/Resolved]
  - Fatigue [Recovered/Resolved]
  - Pelvic pain [Recovered/Resolved]
  - Fatigue [Recovered/Resolved]

NARRATIVE: CASE EVENT DATE: 2015
